FAERS Safety Report 20457908 (Version 1)
Quarter: 2022Q1

REPORT INFORMATION
  Report Type: Other
  Country: GB (occurrence: GB)
  Receive Date: 20220210
  Receipt Date: 20220210
  Transmission Date: 20220423
  Serious: Yes (Other)
  Sender: FDA-Public Use
  Company Number: GB-JNJFOC-20220145108

PATIENT

DRUGS (4)
  1. DEXAMETHASONE [Suspect]
     Active Substance: DEXAMETHASONE
     Indication: Plasma cell myeloma
     Dosage: D1,2,4,5,8,9,11,12
     Route: 065
  2. CYCLOPHOSPHAMIDE [Suspect]
     Active Substance: CYCLOPHOSPHAMIDE
     Indication: Plasma cell myeloma
     Dosage: D1,8,15
     Route: 065
  3. VELCADE [Suspect]
     Active Substance: BORTEZOMIB
     Indication: Plasma cell myeloma
     Dosage: D1,4,8,11
     Route: 065
  4. VELCADE [Suspect]
     Active Substance: BORTEZOMIB
     Dosage: WEEKLY
     Route: 065

REACTIONS (12)
  - Neuropathy peripheral [Recovering/Resolving]
  - Ileus paralytic [Recovering/Resolving]
  - Neutropenia [Unknown]
  - Autonomic neuropathy [Unknown]
  - Hypotension [Recovering/Resolving]
  - Constipation [Recovering/Resolving]
  - Anaemia [Unknown]
  - Platelet count decreased [Unknown]
  - Infection [Unknown]
  - Nausea [Unknown]
  - Dysgeusia [Unknown]
  - Peroneal nerve palsy [Unknown]
